FAERS Safety Report 13632656 (Version 1)
Quarter: 2017Q2

REPORT INFORMATION
  Report Type: Spontaneous
  Country: US (occurrence: US)
  Receive Date: 20170531
  Receipt Date: 20170531
  Transmission Date: 20170830
  Serious: No
  Sender: FDA-Public Use
  Company Number: US-ASTELLAS-1471695

PATIENT
  Age: 67 Year
  Sex: Female

DRUGS (9)
  1. TARCEVA [Suspect]
     Active Substance: ERLOTINIB HYDROCHLORIDE
     Indication: LUNG NEOPLASM MALIGNANT
     Route: 048
     Dates: start: 20140912
  2. LANTUS [Concomitant]
     Active Substance: INSULIN GLARGINE
  3. ASPIRIN. [Concomitant]
     Active Substance: ASPIRIN
  4. INSULIN [Concomitant]
     Active Substance: INSULIN NOS
  5. PEPCID [Concomitant]
     Active Substance: FAMOTIDINE
  6. ALEVE [Concomitant]
     Active Substance: NAPROXEN SODIUM
  7. TARCEVA [Suspect]
     Active Substance: ERLOTINIB HYDROCHLORIDE
     Dosage: DOSE REDUCED
     Route: 048
     Dates: start: 20141106
  8. MAG [Concomitant]
  9. ATORVASTATIN [Concomitant]
     Active Substance: ATORVASTATIN

REACTIONS (1)
  - Rash [Recovered/Resolved]

NARRATIVE: CASE EVENT DATE: 20140921
